FAERS Safety Report 7226500-7 (Version None)
Quarter: 2011Q1

REPORT INFORMATION
  Report Type: 
  Country: None (occurrence: None)
  Receive Date: 20110107
  Receipt Date: 20110107
  Transmission Date: 20110831
  Serious: Yes (Other)
  Sender: FDA-Public Use
  Company Number: None

PATIENT
  Age: 33 Year
  Sex: Female
  Weight: 49.8957 kg

DRUGS (1)
  1. PROMETHAZINE [Suspect]
     Indication: MIGRAINE
     Dosage: 1 DOSE 1 TIME IM
     Route: 030
     Dates: start: 20101029, end: 20101029

REACTIONS (4)
  - INJECTION SITE PAIN [None]
  - INJECTION SITE MASS [None]
  - INJECTION SITE INDURATION [None]
  - GAIT DISTURBANCE [None]
